FAERS Safety Report 5948394-X (Version None)
Quarter: 2008Q4

REPORT INFORMATION
  Report Type: 
  Country: None (occurrence: None)
  Receive Date: 20081110
  Receipt Date: 20081110
  Transmission Date: 20090506
  Serious: Yes (Hospitalization)
  Sender: FDA-Public Use
  Company Number: None

PATIENT
  Age: 56 Year
  Sex: Female
  Weight: 65.7716 kg

DRUGS (2)
  1. TRAMADOL HCL [Suspect]
     Indication: ARTHRALGIA
     Dosage: 2 TABLETS EVERY 6 HRS. PO
     Route: 048
     Dates: start: 20060128, end: 20060128
  2. TRAMADOL HCL [Suspect]
     Indication: BACK PAIN
     Dosage: 2 TABLETS EVERY 6 HRS. PO
     Route: 048
     Dates: start: 20060128, end: 20060128

REACTIONS (9)
  - COLD SWEAT [None]
  - DYSPNOEA [None]
  - EYE MOVEMENT DISORDER [None]
  - FEAR [None]
  - FEELING HOT [None]
  - LOSS OF CONSCIOUSNESS [None]
  - MALAISE [None]
  - NAUSEA [None]
  - VOMITING [None]
